FAERS Safety Report 14581789 (Version 1)
Quarter: 2018Q1

REPORT INFORMATION
  Report Type: Spontaneous
  Country: US (occurrence: US)
  Receive Date: 20180227
  Receipt Date: 20180227
  Transmission Date: 20180509
  Serious: No
  Sender: FDA-Public Use
  Company Number: None

PATIENT
  Age: 73 Year
  Sex: Female

DRUGS (1)
  1. KISQALI [Suspect]
     Active Substance: RIBOCICLIB

REACTIONS (3)
  - Alopecia [None]
  - Muscle spasms [None]
  - Nausea [None]

NARRATIVE: CASE EVENT DATE: 20180226
